FAERS Safety Report 11743774 (Version 1)
Quarter: 2015Q4

REPORT INFORMATION
  Report Type: Report from Study
  Country: GB (occurrence: GB)
  Receive Date: 20151116
  Receipt Date: 20151116
  Transmission Date: 20160304
  Serious: Yes (Other)
  Sender: FDA-Public Use
  Company Number: GB-JNJFOC-20151013630

PATIENT
  Sex: Male

DRUGS (1)
  1. STELARA [Suspect]
     Active Substance: USTEKINUMAB
     Indication: PSORIASIS
     Route: 058
     Dates: start: 20140103

REACTIONS (7)
  - Lower respiratory tract infection [Recovered/Resolved]
  - Pharyngitis [Recovered/Resolved]
  - Oropharyngeal pain [Unknown]
  - Lethargy [Unknown]
  - Arthralgia [Unknown]
  - Sinusitis [Unknown]
  - Asthenia [Unknown]
